FAERS Safety Report 4827304-2 (Version None)
Quarter: 2005Q4

REPORT INFORMATION
  Report Type: 
  Country: None (occurrence: None)
  Receive Date: 20051014
  Receipt Date: 20050830
  Transmission Date: 20060501
  Serious: No
  Sender: FDA-Public Use
  Company Number: 2005SP002575

PATIENT
  Age: 37 Year
  Sex: Male
  Weight: 99.7913 kg

DRUGS (2)
  1. LUNESTA [Suspect]
     Dosage: 3 MG; HS; ORAL
     Route: 048
     Dates: start: 20050827, end: 20050911
  2. XANAX [Concomitant]

REACTIONS (8)
  - DEPRESSION [None]
  - DYSARTHRIA [None]
  - DYSGEUSIA [None]
  - FEELING ABNORMAL [None]
  - HEART RATE INCREASED [None]
  - IRRITABILITY [None]
  - NERVOUSNESS [None]
  - THINKING ABNORMAL [None]
